FAERS Safety Report 14704904 (Version 2)
Quarter: 2018Q2

REPORT INFORMATION
  Report Type: Report from Study
  Country: BE (occurrence: BE)
  Receive Date: 20180402
  Receipt Date: 20180411
  Transmission Date: 20180711
  Serious: Yes (Hospitalization)
  Sender: FDA-Public Use
  Company Number: PHHO2018BE003996

PATIENT
  Age: 79 Year
  Sex: Male
  Weight: 67.7 kg

DRUGS (13)
  1. CRESTAR [Concomitant]
     Indication: PRODUCT USED FOR UNKNOWN INDICATION
     Dosage: 10 MG, 1X/D
     Route: 065
     Dates: end: 20180316
  2. EXACYL [Concomitant]
     Active Substance: TRANEXAMIC ACID
     Indication: PRODUCT USED FOR UNKNOWN INDICATION
     Dosage: 1 G, UNK
     Route: 065
  3. METOPROLOL. [Concomitant]
     Active Substance: METOPROLOL
     Indication: PRODUCT USED FOR UNKNOWN INDICATION
     Dosage: 200 MG, QD
     Route: 065
  4. ICL670A [Suspect]
     Active Substance: DEFERASIROX
     Indication: MYELODYSPLASTIC SYNDROME
     Dosage: 1125 MG, UNK
     Route: 048
     Dates: start: 20170422, end: 20180315
  5. AZACITIDINE. [Suspect]
     Active Substance: AZACITIDINE
     Dosage: 69.75 MG, UNK
     Route: 058
     Dates: start: 20180312
  6. TEVAGRASTIM [Concomitant]
     Active Substance: FILGRASTIM
     Indication: PRODUCT USED FOR UNKNOWN INDICATION
     Dosage: 30 MIU, Q2W
     Route: 065
  7. PANTOMED (DEXPANTHENOL) [Concomitant]
     Active Substance: DEXPANTHENOL
     Indication: PRODUCT USED FOR UNKNOWN INDICATION
     Dosage: 20 MG, QD
     Route: 065
  8. ZYLORIC [Concomitant]
     Active Substance: ALLOPURINOL
     Indication: PRODUCT USED FOR UNKNOWN INDICATION
     Dosage: 300 MG, 1/2 CO 1X/D
     Route: 065
     Dates: end: 20180315
  9. COLECALCIFEROL [Suspect]
     Active Substance: CHOLECALCIFEROL
     Indication: MYELODYSPLASTIC SYNDROME
     Dosage: 100.000 IE
     Route: 048
     Dates: start: 20170422, end: 20180310
  10. ACICLOVIR [Concomitant]
     Active Substance: ACYCLOVIR
     Indication: PRODUCT USED FOR UNKNOWN INDICATION
     Dosage: 800 MG 1 CO/D
     Route: 065
     Dates: end: 20180315
  11. COVERAM [Concomitant]
     Active Substance: AMLODIPINE\PERINDOPRIL
     Indication: PRODUCT USED FOR UNKNOWN INDICATION
     Dosage: 5/5, 1X/D
     Route: 065
     Dates: end: 20180315
  12. AZACITIDINE. [Suspect]
     Active Substance: AZACITIDINE
     Indication: MYELODYSPLASTIC SYNDROME
     Dosage: 69.75 MG, UNK
     Route: 058
     Dates: start: 20170421, end: 20170427
  13. CORUNO [Concomitant]
     Active Substance: MOLSIDOMINE
     Indication: PRODUCT USED FOR UNKNOWN INDICATION
     Dosage: 16 MG, QD
     Route: 065

REACTIONS (2)
  - Acute kidney injury [Recovered/Resolved]
  - Hepatic enzyme increased [Recovered/Resolved]

NARRATIVE: CASE EVENT DATE: 20180312
